FAERS Safety Report 8388950-5 (Version None)
Quarter: 2012Q2

REPORT INFORMATION
  Report Type: 
  Country: None (occurrence: None)
  Receive Date: 20120528
  Receipt Date: 20120523
  Transmission Date: 20120825
  Serious: Yes (Other)
  Sender: FDA-Public Use
  Company Number: DE-AMGEN-DEUSP2012020595

PATIENT
  Age: 57 Year
  Sex: Female

DRUGS (8)
  1. GLUCOCORTICOIDS [Concomitant]
  2. AVASTIN [Concomitant]
     Indication: BREAST CANCER
     Dosage: 10 MG/KG, PER CHEMO REGIM
     Route: 042
     Dates: start: 20111006, end: 20120315
  3. XGEVA [Suspect]
  4. ANTINEOPLASTIC AGENTS [Concomitant]
  5. XGEVA [Suspect]
     Indication: METASTASES TO BONE
     Dosage: 120 MG, Q4WK
     Route: 058
     Dates: start: 20111006, end: 20120223
  6. PACLITAXEL [Concomitant]
     Indication: BREAST CANCER
     Dosage: UNK UNK, PER CHEMO REGIM
     Route: 042
     Dates: start: 20111006, end: 20120315
  7. BISPHOSPHONATES [Concomitant]
  8. ENZYME INHIBITORS [Concomitant]
     Indication: BREAST CANCER
     Dosage: 1 MG, QD
     Dates: start: 20120315

REACTIONS (1)
  - OSTEONECROSIS OF JAW [None]
